FAERS Safety Report 25354542 (Version 1)
Quarter: 2025Q2

REPORT INFORMATION
  Report Type: Spontaneous
  Country: CN (occurrence: CN)
  Receive Date: 20250523
  Receipt Date: 20250523
  Transmission Date: 20250716
  Serious: Yes (Hospitalization)
  Sender: ABBVIE
  Company Number: CN-ABBVIE-6290321

PATIENT
  Age: 20 Year
  Sex: Female
  Weight: 42 kg

DRUGS (4)
  1. VENCLEXTA [Suspect]
     Active Substance: VENETOCLAX
     Indication: Acute myeloid leukaemia
     Dosage: 200 MILLIGRAM?VENETOCLAX 200 MG/D D1-14)
     Route: 048
     Dates: start: 20250411, end: 20250425
  2. IDARUBICIN HYDROCHLORIDE [Suspect]
     Active Substance: IDARUBICIN HYDROCHLORIDE
     Indication: Acute myeloid leukaemia
     Dosage: 15 MILLIGRAM?IDARUBICIN 15 MG/D D1-3?ROUTE INTRAVENOUS DRIP
     Route: 065
     Dates: start: 20250411, end: 20250414
  3. AZACITIDINE [Suspect]
     Active Substance: AZACITIDINE
     Indication: Acute myeloid leukaemia
     Dosage: 300 MILLIGRAM?AZACITIDINE 300 MG/D D1-7
     Route: 065
     Dates: start: 20250411, end: 20250418
  4. CYTARABINE [Suspect]
     Active Substance: CYTARABINE
     Indication: Acute myeloid leukaemia
     Dosage: 300 MILLIGRAM, ROUTE - INTRAVENOUS DRIP
     Route: 065
     Dates: start: 20250411, end: 20250418

REACTIONS (1)
  - Myelosuppression [Unknown]

NARRATIVE: CASE EVENT DATE: 20250418
